FAERS Safety Report 4313622-3 (Version None)
Quarter: 2004Q1

REPORT INFORMATION
  Report Type: 
  Country: None (occurrence: None)
  Receive Date: 20040305
  Receipt Date: 20040223
  Transmission Date: 20041129
  Serious: Yes (Death, Hospitalization, Disabling)
  Sender: FDA-Public Use
  Company Number: 04P-163-0249822-00

PATIENT
  Age: 43 Year
  Sex: Male

DRUGS (1)
  1. KALETRA [Suspect]
     Indication: HIV INFECTION
     Dosage: 1000 MG , 1 IN 1 D, PER ORAL
     Route: 048
     Dates: start: 20030811, end: 20040127

REACTIONS (3)
  - CYTOMEGALOVIRUS CHORIORETINITIS [None]
  - OESOPHAGEAL CANDIDIASIS [None]
  - PNEUMONIA CYTOMEGALOVIRAL [None]
